FAERS Safety Report 12533801 (Version 1)
Quarter: 2016Q3

REPORT INFORMATION
  Report Type: Report from Study
  Country: US (occurrence: US)
  Receive Date: 20160706
  Receipt Date: 20160706
  Transmission Date: 20161109
  Serious: Yes (Hospitalization)
  Sender: FDA-Public Use
  Company Number: US-BAUSCH-BL-2016-015769

PATIENT
  Age: 70 Year
  Sex: Male
  Weight: 69.92 kg

DRUGS (4)
  1. XIFAXAN [Suspect]
     Active Substance: RIFAXIMIN
     Indication: HEPATIC CIRRHOSIS
  2. LACTULOSE. [Concomitant]
     Active Substance: LACTULOSE
     Indication: HEPATIC CIRRHOSIS
  3. LACTULOSE. [Concomitant]
     Active Substance: LACTULOSE
     Indication: ASCITES
     Route: 048
     Dates: start: 201603
  4. XIFAXAN [Suspect]
     Active Substance: RIFAXIMIN
     Indication: ASCITES
     Route: 048
     Dates: start: 20160406

REACTIONS (2)
  - Fluid retention [Not Recovered/Not Resolved]
  - Blood sodium decreased [Not Recovered/Not Resolved]

NARRATIVE: CASE EVENT DATE: 20160531
